FAERS Safety Report 7316167-1 (Version None)
Quarter: 2011Q1

REPORT INFORMATION
  Report Type: 
  Country: None (occurrence: None)
  Receive Date: 20110225
  Receipt Date: 20110214
  Transmission Date: 20110831
  Serious: Yes (Hospitalization)
  Sender: FDA-Public Use
  Company Number: JP-BRISTOL-MYERS SQUIBB COMPANY-15540388

PATIENT
  Age: 53 Year
  Sex: Female
  Weight: 40 kg

DRUGS (8)
  1. AMARYL [Concomitant]
     Indication: TYPE 2 DIABETES MELLITUS
     Route: 048
     Dates: start: 20101222
  2. TAFLUPROST [Concomitant]
     Indication: OCULAR HYPERTENSION
     Route: 047
     Dates: start: 20100615
  3. SEIBULE [Concomitant]
     Indication: TYPE 2 DIABETES MELLITUS
     Dosage: TAB
     Route: 048
     Dates: start: 20100615
  4. SAXAGLIPTIN [Suspect]
     Indication: TYPE 2 DIABETES MELLITUS
     Dosage: SAXAGLIPTIN TABS.
     Route: 048
     Dates: start: 20101130, end: 20101221
  5. URSO 250 [Concomitant]
     Dosage: TAB
     Dates: start: 20110114
  6. CARNACULIN [Concomitant]
     Indication: DIABETIC RETINOPATHY
     Dosage: 1 DF=50LU TAB
     Route: 048
     Dates: start: 20101001
  7. SAIREI-TO [Concomitant]
     Indication: DIABETIC RETINOPATHY
     Dosage: GRANULES
     Route: 048
     Dates: start: 20101001
  8. NEO-MINOPHAGEN C [Concomitant]
     Dosage: INJ
     Route: 051
     Dates: start: 20110119

REACTIONS (1)
  - HEPATIC FUNCTION ABNORMAL [None]
